FAERS Safety Report 9298329 (Version 2)
Quarter: 2013Q2

REPORT INFORMATION
  Report Type: Spontaneous
  Country: FR (occurrence: FR)
  Receive Date: 20130520
  Receipt Date: 20130603
  Transmission Date: 20140414
  Serious: Yes (Other)
  Sender: FDA-Public Use
  Company Number: FR-BAYER-2013-061178

PATIENT
  Age: 25 Year
  Sex: Female

DRUGS (1)
  1. QLAIRA [Suspect]

REACTIONS (1)
  - Urinary tract infection [None]
